FAERS Safety Report 4809700-2 (Version None)
Quarter: 2005Q4

REPORT INFORMATION
  Report Type: 
  Country: None (occurrence: None)
  Receive Date: 20051021
  Receipt Date: 20050718
  Transmission Date: 20060501
  Serious: Yes (Hospitalization)
  Sender: FDA-Public Use
  Company Number: USA0507103062

PATIENT
  Age: 56 Year
  Sex: Male

DRUGS (4)
  1. ZYPREXA [Suspect]
     Indication: BIPOLAR DISORDER
     Dates: start: 20050501
  2. LEXAPRO [Concomitant]
  3. ARICEPT [Concomitant]
  4. TEGRETOL [Concomitant]

REACTIONS (4)
  - ANXIETY [None]
  - MANIA [None]
  - SELF-INJURIOUS IDEATION [None]
  - WHITE BLOOD CELL COUNT DECREASED [None]
